FAERS Safety Report 16123986 (Version 1)
Quarter: 2019Q1

REPORT INFORMATION
  Report Type: Spontaneous
  Country: AU (occurrence: AU)
  Receive Date: 20190327
  Receipt Date: 20190327
  Transmission Date: 20190418
  Serious: Yes (Hospitalization)
  Sender: FDA-Public Use
  Company Number: AU-AMREGENT-20190557

PATIENT

DRUGS (1)
  1. FERINJECT [Suspect]
     Active Substance: FERRIC CARBOXYMALTOSE
     Dosage: ^1000 MG (MOST LIKELY)^
     Route: 041

REACTIONS (4)
  - Malaise [Unknown]
  - Dyspnoea [Unknown]
  - Dysgeusia [Unknown]
  - Hypotension [Unknown]
